FAERS Safety Report 10205448 (Version 2)
Quarter: 2014Q2

REPORT INFORMATION
  Report Type: Spontaneous
  Country: US (occurrence: US)
  Receive Date: 20140529
  Receipt Date: 20140529
  Transmission Date: 20141212
  Serious: No
  Sender: FDA-Public Use
  Company Number: US-009507513-1404USA006165

PATIENT
  Age: 73 Year
  Sex: Female
  Weight: 48.98 kg

DRUGS (13)
  1. MIRALAX [Suspect]
     Indication: CONSTIPATION
     Dosage: 8.5 G, UNKNOWN
     Route: 048
     Dates: start: 20140328
  2. MIRALAX [Suspect]
     Indication: FAECES HARD
     Dosage: 17 G, QD
     Route: 048
  3. LEVOTHYROXINE SODIUM [Concomitant]
     Indication: THYROID DISORDER
     Dosage: 25 MG, QAM
     Dates: start: 20130929
  4. DIOVAN [Concomitant]
     Indication: HYPERTENSION
     Dosage: 80 MG, UNK
  5. LORAZEPAM [Concomitant]
     Indication: ANXIETY
     Dosage: UNK, PRN
  6. MIRTAZAPINE [Concomitant]
     Indication: ANXIETY
     Dosage: 30 MG, HS
  7. MIRTAZAPINE [Concomitant]
     Indication: DEPRESSION
  8. MIRTAZAPINE [Concomitant]
     Indication: SLEEP DISORDER
  9. RESTASIS [Concomitant]
     Indication: DRY EYE
     Dosage: UNK, BID
  10. SYSTANE [Concomitant]
     Indication: PRODUCT USED FOR UNKNOWN INDICATION
     Dosage: UNK, BID
  11. ALLERGENIC EXTRACT [Concomitant]
     Indication: HYPERSENSITIVITY
  12. DEGLYCYRRHIZINATED LICORICE [Concomitant]
     Indication: DYSPEPSIA
     Dosage: UNK, UNKNOWN
  13. TUMS [Concomitant]
     Indication: PRODUCT USED FOR UNKNOWN INDICATION
     Dosage: UNK, PRN

REACTIONS (3)
  - Abnormal faeces [Unknown]
  - Underdose [Unknown]
  - Drug prescribing error [Unknown]
